FAERS Safety Report 13355316 (Version 1)
Quarter: 2017Q1

REPORT INFORMATION
  Report Type: Spontaneous
  Country: IL (occurrence: IL)
  Receive Date: 20170321
  Receipt Date: 20170321
  Transmission Date: 20170429
  Serious: Yes (Death)
  Sender: FDA-Public Use
  Company Number: IL-ACTELION-A-CH2017-151105

PATIENT
  Age: 70 Year
  Sex: Female

DRUGS (2)
  1. TYVASO [Concomitant]
     Active Substance: TREPROSTINIL
     Indication: PULMONARY ARTERIAL HYPERTENSION
     Route: 055
  2. OPSUMIT [Suspect]
     Active Substance: MACITENTAN
     Indication: PULMONARY ARTERIAL HYPERTENSION
     Dosage: 10 MG, QD
     Route: 048
     Dates: start: 2016, end: 2017

REACTIONS (3)
  - Pulmonary arterial hypertension [Unknown]
  - Condition aggravated [Unknown]
  - Respiratory failure [Fatal]

NARRATIVE: CASE EVENT DATE: 2017
